FAERS Safety Report 15058231 (Version 1)
Quarter: 2018Q2

REPORT INFORMATION
  Report Type: Spontaneous
  Country: JP (occurrence: JP)
  Receive Date: 20180625
  Receipt Date: 20180625
  Transmission Date: 20180711
  Serious: Yes (Hospitalization, Other)
  Sender: FDA-Public Use
  Company Number: JP-ACCORD-068738

PATIENT
  Age: 73 Year
  Sex: Female
  Weight: 36.9 kg

DRUGS (2)
  1. METHOTREXATE. [Suspect]
     Active Substance: METHOTREXATE
     Indication: RHEUMATOID ARTHRITIS
     Dosage: 14 MONTHS BEFORE THE FIRST VISIT, LONG TERM DOSING
     Route: 048
  2. PREDNISOLONE. [Concomitant]
     Active Substance: PREDNISOLONE
     Indication: RHEUMATOID ARTHRITIS
     Dosage: LONG TERM DOSING

REACTIONS (6)
  - Gastric ulcer [Unknown]
  - Anaemia [Unknown]
  - Angiocentric lymphoma [Recovering/Resolving]
  - Epstein-Barr virus infection [Unknown]
  - Cryptococcus test positive [Unknown]
  - Pleural effusion [Unknown]
